FAERS Safety Report 5454349-4 (Version None)
Quarter: 2007Q3

REPORT INFORMATION
  Report Type: 
  Country: None (occurrence: None)
  Receive Date: 20070917
  Receipt Date: 20070228
  Transmission Date: 20080115
  Serious: Yes (Other)
  Sender: FDA-Public Use
  Company Number: US-ASTRAZENECA-2006UW11629

PATIENT
  Age: 582 Month
  Sex: Male
  Weight: 81.8 kg

DRUGS (3)
  1. SEROQUEL [Suspect]
     Indication: BIPOLAR DISORDER
     Route: 048
     Dates: start: 20050101
  2. SEROQUEL [Suspect]
     Indication: POST-TRAUMATIC STRESS DISORDER
     Route: 048
     Dates: start: 20050101
  3. ZYPREXA/SYMBYAX [Concomitant]
     Dates: start: 20041116, end: 20050722

REACTIONS (2)
  - DIABETES MELLITUS [None]
  - PANCREATITIS [None]
